FAERS Safety Report 7664388-0 (Version None)
Quarter: 2011Q3

REPORT INFORMATION
  Report Type: 
  Country: None (occurrence: None)
  Receive Date: 20110806
  Receipt Date: 20110119
  Transmission Date: 20111222
  Serious: No
  Sender: FDA-Public Use
  Company Number: US-ABBOTT-11P-163-0699985-00

PATIENT
  Sex: Male
  Weight: 111.23 kg

DRUGS (5)
  1. NIASPAN [Suspect]
     Dates: start: 20110118
  2. MICARDIS [Concomitant]
     Indication: HYPERTENSION
     Dosage: STARTED TWO YEARS AGO.
     Dates: start: 20090101
  3. SIMVASTATIN [Concomitant]
     Indication: BLOOD CHOLESTEROL INCREASED
  4. NIASPAN [Suspect]
     Indication: HIGH DENSITY LIPOPROTEIN DECREASED
     Dates: start: 20101201, end: 20110117
  5. ASPIRIN [Concomitant]
     Indication: FLUSHING
     Dates: start: 20101201

REACTIONS (6)
  - FLATULENCE [None]
  - ERYTHEMA [None]
  - DYSPEPSIA [None]
  - FEELING HOT [None]
  - PRURITUS [None]
  - FLUSHING [None]
